FAERS Safety Report 7380835-6 (Version None)
Quarter: 2011Q1

REPORT INFORMATION
  Report Type: 
  Country: None (occurrence: None)
  Receive Date: 20110329
  Receipt Date: 20110317
  Transmission Date: 20110831
  Serious: Yes (Hospitalization)
  Sender: FDA-Public Use
  Company Number: B0690725A

PATIENT
  Sex: Female
  Weight: 38.2 kg

DRUGS (6)
  1. LEVETIRACETAM [Suspect]
     Indication: EPILEPSY
     Dosage: 500MG TWICE PER DAY
     Route: 048
     Dates: start: 20061228
  2. SULPIRIDE [Suspect]
     Indication: DEPRESSIVE SYMPTOM
     Route: 048
     Dates: start: 20091130
  3. VALPROATE SODIUM [Suspect]
     Indication: EPILEPSY
     Dates: start: 20061228
  4. METHYCOBAL [Suspect]
     Route: 048
     Dates: start: 20100821
  5. LAMICTAL [Suspect]
     Indication: EPILEPSY
     Route: 048
  6. TOPIRAMATE [Suspect]
     Indication: EPILEPSY
     Dates: start: 20080926

REACTIONS (1)
  - HALLUCINATION [None]
